FAERS Safety Report 7701933-0 (Version None)
Quarter: 2011Q3

REPORT INFORMATION
  Report Type: 
  Country: None (occurrence: None)
  Receive Date: 20110822
  Receipt Date: 20110811
  Transmission Date: 20111222
  Serious: Yes (Hospitalization)
  Sender: FDA-Public Use
  Company Number: DE-ASTRAZENECA-2011SE48255

PATIENT
  Age: 75 Year
  Sex: Female

DRUGS (3)
  1. CLARITHROMYCIN [Suspect]
     Indication: PEPTIC ULCER
  2. OMEPRAZOLE [Suspect]
     Indication: PEPTIC ULCER
  3. AMOXICILLIN [Suspect]
     Indication: PEPTIC ULCER

REACTIONS (1)
  - DRUG ERUPTION [None]
